FAERS Safety Report 11090424 (Version 3)
Quarter: 2015Q3

REPORT INFORMATION
  Report Type: Spontaneous
  Country: JP (occurrence: JP)
  Receive Date: 20150505
  Receipt Date: 20150806
  Transmission Date: 20151125
  Serious: Yes (Other)
  Sender: FDA-Public Use
  Company Number: JP-ASTRAZENECA-2015SE40175

PATIENT
  Age: 45 Year
  Sex: Female
  Weight: 42 kg

DRUGS (4)
  1. FOSAMAC [Concomitant]
     Active Substance: ALENDRONATE SODIUM
     Indication: OSTEOPOROSIS
     Dosage: ON AWAKENING, 35 MG ONCE A WEEK
     Route: 048
     Dates: start: 20070115
  2. FASLODEX [Suspect]
     Active Substance: FULVESTRANT
     Indication: BREAST CANCER RECURRENT
     Route: 030
     Dates: start: 20150406, end: 20150406
  3. NOLVADEX [Suspect]
     Active Substance: TAMOXIFEN CITRATE
     Route: 048
  4. ONEALFA [Concomitant]
     Active Substance: ALFACALCIDOL
     Indication: OSTEOPOROSIS
     Dosage: AFTER BREAKFAST, 1 UG EVERY DAY
     Route: 048
     Dates: start: 20070115

REACTIONS (5)
  - Dizziness [Recovered/Resolved]
  - Drug hypersensitivity [Unknown]
  - Disorientation [Recovered/Resolved]
  - Erythema [Unknown]
  - Tremor [Recovered/Resolved]

NARRATIVE: CASE EVENT DATE: 1995
